FAERS Safety Report 6044303-6 (Version None)
Quarter: 2009Q1

REPORT INFORMATION
  Report Type: 
  Country: None (occurrence: None)
  Receive Date: 20090115
  Receipt Date: 20090115
  Transmission Date: 20090719
  Serious: Yes (Other)
  Sender: FDA-Public Use
  Company Number: None

PATIENT
  Age: 53 Year
  Sex: Male
  Weight: 95.2554 kg

DRUGS (1)
  1. VALPROATE SODIUM [Suspect]
     Indication: EPILEPSY
     Dosage: 500MG BID PO
     Route: 048
     Dates: start: 20080701, end: 20081231

REACTIONS (2)
  - CLONUS [None]
  - PARTIAL SEIZURES [None]
